FAERS Safety Report 19686846 (Version 1)
Quarter: 2021Q3

REPORT INFORMATION
  Report Type: Spontaneous
  Country: US (occurrence: US)
  Receive Date: 20210811
  Receipt Date: 20210811
  Transmission Date: 20211014
  Serious: Yes (Other)
  Sender: FDA-Public Use
  Company Number: US-SCILEX PHARMACEUTICALS INC.-2021SCX00028

PATIENT
  Sex: Female
  Weight: 73 kg

DRUGS (12)
  1. FENTANYL. [Concomitant]
     Active Substance: FENTANYL
     Indication: ANAESTHESIA
     Dosage: 200 ?G
     Route: 065
  2. LIDOCAINE. [Suspect]
     Active Substance: LIDOCAINE
     Indication: ANAESTHESIA
     Dosage: 100 MG (ANESTHESIA_
     Route: 042
  3. LIDOCAINE. [Suspect]
     Active Substance: LIDOCAINE
     Indication: VENTRICULAR ARRHYTHMIA
     Dosage: 200 MG (CARDIOVERSION)
  4. KETAMINE [Concomitant]
     Active Substance: KETAMINE
     Dosage: KETAMINE INFUSION 10 MG/H
  5. LIDOCAINE. [Suspect]
     Active Substance: LIDOCAINE
     Dosage: 4 MG/MIN INFUSION
  6. LIDOCAINE. [Suspect]
     Active Substance: LIDOCAINE
     Dosage: 78 KG 1 MG/KG OF PATIENT BODY WEIGHT (POVT)
     Route: 042
  7. LIDOCAINE. [Suspect]
     Active Substance: LIDOCAINE
     Dosage: 2 MG/MIN INFUSION
     Route: 042
  8. LIDOCAINE. [Suspect]
     Active Substance: LIDOCAINE
     Dosage: 3 MG/MIN INFUSION
     Route: 042
  9. KETAMINE [Concomitant]
     Active Substance: KETAMINE
     Dosage: 34 MG
     Route: 065
  10. ROCURONIUM [Concomitant]
     Active Substance: ROCURONIUM BROMIDE
     Dosage: 50 MG
     Route: 065
  11. LIDOCAINE. [Suspect]
     Active Substance: LIDOCAINE
     Indication: CARDIOVERSION
     Dosage: 100 MG (CARDIOVERSION)
  12. PROPOFOL. [Concomitant]
     Active Substance: PROPOFOL
     Dosage: 50 MG
     Route: 065

REACTIONS (2)
  - Status epilepticus [Recovered/Resolved]
  - Toxicity to various agents [Recovered/Resolved]
